FAERS Safety Report 18933706 (Version 2)
Quarter: 2021Q3

REPORT INFORMATION
  Report Type: Spontaneous
  Country: JP (occurrence: JP)
  Receive Date: 20210224
  Receipt Date: 20210916
  Transmission Date: 20211014
  Serious: Yes (Other)
  Sender: FDA-Public Use
  Company Number: JP-GLAXOSMITHKLINE-JP2021046304

PATIENT
  Age: 4 Decade
  Sex: Female

DRUGS (1)
  1. ZEJULA [Suspect]
     Active Substance: NIRAPARIB
     Indication: OVARIAN CANCER RECURRENT
     Dosage: 200 MILLIGRAM
     Route: 048
     Dates: start: 20210119, end: 20210122

REACTIONS (3)
  - Disease progression [Unknown]
  - Ascites [Recovered/Resolved]
  - Ovarian cancer recurrent [Unknown]

NARRATIVE: CASE EVENT DATE: 20210122
